FAERS Safety Report 7317679 (Version 9)
Quarter: 2013Q3

REPORT INFORMATION
  Report Type: Spontaneous
  Country: US (occurrence: US)
  Receive Date: 20100312
  Receipt Date: 20130927
  Transmission Date: 20140515
  Serious: Yes (Hospitalization, Other)
  Sender: FDA-Public Use
  Company Number: US-BAYER-201016109NA

PATIENT
  Age: 41 Year
  Sex: Female
  Weight: 81.82 kg

DRUGS (9)
  1. YAZ [Suspect]
     Indication: PRODUCT USED FOR UNKNOWN INDICATION
     Route: 048
  2. YASMIN [Suspect]
     Indication: PRODUCT USED FOR UNKNOWN INDICATION
     Route: 048
     Dates: start: 200109, end: 2005
  3. YASMIN [Suspect]
     Indication: PRODUCT USED FOR UNKNOWN INDICATION
     Dosage: UNK
     Dates: start: 2005, end: 2005
  4. ASPIRIN [Concomitant]
     Indication: THROMBOPHLEBITIS SUPERFICIAL
     Dosage: 81 MG, UNK
  5. MICARDIS HCT [Concomitant]
  6. EFFEXOR XR [Concomitant]
  7. PROTONIX [Concomitant]
  8. KARIVA [Concomitant]
  9. FLONASE [Concomitant]

REACTIONS (8)
  - Pulmonary embolism [Unknown]
  - Cor pulmonale acute [Unknown]
  - Respiratory disorder [Unknown]
  - Pulmonary infarction [None]
  - Deep vein thrombosis [None]
  - Deep vein thrombosis [None]
  - Thrombophlebitis superficial [None]
  - Off label use [None]
